FAERS Safety Report 19957324 (Version 1)
Quarter: 2021Q4

REPORT INFORMATION
  Report Type: Spontaneous
  Country: US (occurrence: US)
  Receive Date: 20211014
  Receipt Date: 20211014
  Transmission Date: 20220303
  Serious: No
  Sender: FDA-Public Use
  Company Number: US-MYLANLABS-2021M1069997

PATIENT
  Sex: Female
  Weight: 54 kg

DRUGS (2)
  1. SCOPOLAMINE [Suspect]
     Active Substance: SCOPOLAMINE
     Indication: Dizziness
     Dosage: 1 MILLIGRAM, Q3D (ONE PATCH EVERY 3 DAYS/72 HOURS)
     Route: 062
     Dates: start: 20211005
  2. SCOPOLAMINE [Suspect]
     Active Substance: SCOPOLAMINE
     Indication: Vertigo

REACTIONS (2)
  - Off label use [Unknown]
  - Product adhesion issue [Unknown]
